FAERS Safety Report 7756567-9 (Version None)
Quarter: 2011Q3

REPORT INFORMATION
  Report Type: 
  Country: None (occurrence: None)
  Receive Date: 20110916
  Receipt Date: 20110907
  Transmission Date: 20111222
  Serious: Yes (Hospitalization)
  Sender: FDA-Public Use
  Company Number: CA-JNJFOC-20110711037

PATIENT
  Age: 67 Year
  Sex: Female
  Weight: 114 kg

DRUGS (23)
  1. CLONAZEPAM [Concomitant]
     Dates: start: 20110320
  2. HYDROMORPHONE [Concomitant]
     Dates: start: 20110320
  3. SERTRALINE HYDROCHLORIDE [Concomitant]
     Dates: start: 20110320
  4. CARBAMAZEPINE [Concomitant]
     Dates: start: 20110320
  5. ACETAMINOPHEN [Concomitant]
     Dates: start: 20110321
  6. FLUTICASONE PROPIONATE [Concomitant]
     Dates: start: 20110320
  7. FUROSEMIDE [Concomitant]
     Dates: start: 20110322, end: 20110322
  8. NALOXONE [Concomitant]
     Dates: start: 20110321, end: 20110322
  9. OLMESARTAN MEDOXOMIL [Concomitant]
     Dates: start: 20110321
  10. BUPIVACAINE HCL [Concomitant]
     Dates: start: 20110321, end: 20110322
  11. LANSOPRAZOLE [Concomitant]
     Dates: start: 20110321
  12. OXYCODONE HCL [Concomitant]
     Dates: start: 20110320
  13. CEFAZOLIN [Concomitant]
     Dates: start: 20110321, end: 20110322
  14. HYDROMORPHONE HCL [Concomitant]
     Dates: start: 20110320
  15. ACEBUTOLOL [Concomitant]
     Dates: start: 20110320
  16. BETAHISTINE [Concomitant]
     Dates: start: 20110320
  17. ACETYLSALICYLIC ACID [Concomitant]
     Dates: start: 20110321
  18. ALBUTEROL [Concomitant]
     Dates: start: 20110320
  19. LEVOTHYROXINE SODIUM [Concomitant]
     Dates: start: 20110320
  20. XARELTO [Suspect]
     Indication: THROMBOSIS PROPHYLAXIS
     Route: 048
     Dates: start: 20110321, end: 20110321
  21. AMLODIPINE [Concomitant]
     Dates: start: 20110320
  22. CLOBAZAM [Concomitant]
     Dates: start: 20110320
  23. HYDROCHLOROTHIAZIDE [Concomitant]
     Dates: start: 20110321, end: 20110323

REACTIONS (6)
  - ELECTROCARDIOGRAM ABNORMAL [None]
  - GRAND MAL CONVULSION [None]
  - HYPONATRAEMIA [None]
  - HAEMOGLOBIN DECREASED [None]
  - TROPONIN INCREASED [None]
  - SEDATION [None]
